FAERS Safety Report 19201971 (Version 1)
Quarter: 2021Q2

REPORT INFORMATION
  Report Type: Spontaneous
  Country: CA (occurrence: CA)
  Receive Date: 20210430
  Receipt Date: 20210430
  Transmission Date: 20210717
  Serious: Yes (Other)
  Sender: FDA-Public Use
  Company Number: CA-BAYER-2021-128590

PATIENT
  Sex: Female

DRUGS (3)
  1. TETRACAINE HYDROCHLORIDE. [Suspect]
     Active Substance: TETRACAINE HYDROCHLORIDE
     Indication: INDUCTION OF ANAESTHESIA
     Dosage: UNK
     Route: 065
  2. AVELOX [Suspect]
     Active Substance: MOXIFLOXACIN HYDROCHLORIDE
     Indication: PRODUCT USED FOR UNKNOWN INDICATION
     Dosage: UNK
     Route: 047
  3. LUCENTIS [Suspect]
     Active Substance: RANIBIZUMAB
     Indication: PRODUCT USED FOR UNKNOWN INDICATION
     Dosage: UNK
     Route: 065

REACTIONS (32)
  - Cerebrovascular accident [Unknown]
  - Chest discomfort [Unknown]
  - Fatigue [Unknown]
  - Influenza like illness [Unknown]
  - Abdominal discomfort [Unknown]
  - Nasal congestion [Unknown]
  - Cough [Unknown]
  - Dizziness [Unknown]
  - Headache [Unknown]
  - Vision blurred [Unknown]
  - Arthralgia [Unknown]
  - Discomfort [Unknown]
  - Nasopharyngitis [Unknown]
  - Confusional state [Unknown]
  - Hypoaesthesia [Unknown]
  - Lethargy [Unknown]
  - Myalgia [Unknown]
  - Sinus headache [Unknown]
  - Vitreous floaters [Unknown]
  - Asthenia [Unknown]
  - Eye pain [Unknown]
  - Intentional dose omission [Unknown]
  - Paraesthesia [Unknown]
  - Abdominal pain [Unknown]
  - Disorientation [Unknown]
  - Eye irritation [Unknown]
  - Gastrooesophageal reflux disease [Unknown]
  - Irritability [Unknown]
  - Joint swelling [Unknown]
  - Oropharyngeal pain [Unknown]
  - Pain [Unknown]
  - Photophobia [Unknown]
